FAERS Safety Report 6978931-8 (Version None)
Quarter: 2010Q3

REPORT INFORMATION
  Report Type: 
  Country: None (occurrence: None)
  Receive Date: 20100913
  Receipt Date: 20100907
  Transmission Date: 20110219
  Serious: Yes (Death)
  Sender: FDA-Public Use
  Company Number: US-GILEAD-2010-0031708

PATIENT
  Sex: Female
  Weight: 62.652 kg

DRUGS (15)
  1. LETAIRIS [Suspect]
     Indication: PULMONARY ARTERIAL HYPERTENSION
     Route: 048
     Dates: start: 20070825
  2. PEPCID [Concomitant]
  3. PREDNISONE [Concomitant]
  4. BENADRYL [Concomitant]
  5. REYATAZ [Concomitant]
  6. LASIX [Concomitant]
  7. TRICOR [Concomitant]
  8. NORVIR [Concomitant]
  9. GLUCOPHAGE [Concomitant]
  10. BENAZEPRIL HYDROCHLORIDE [Concomitant]
  11. EPZICOM [Concomitant]
  12. KLOR-CON [Concomitant]
  13. MULTI-VITAMIN [Concomitant]
  14. ACTOS [Concomitant]
  15. VIREAD [Concomitant]

REACTIONS (1)
  - DEATH [None]
